FAERS Safety Report 6350747-5 (Version None)
Quarter: 2009Q3

REPORT INFORMATION
  Report Type: 
  Country: None (occurrence: None)
  Receive Date: 20090911
  Receipt Date: 20090622
  Transmission Date: 20100115
  Serious: No
  Sender: FDA-Public Use
  Company Number: US-ABBOTT-07P-163-0370168-00

PATIENT
  Sex: Female
  Weight: 56.75 kg

DRUGS (11)
  1. HUMIRA [Suspect]
     Indication: RHEUMATOID ARTHRITIS
     Route: 058
     Dates: start: 20070301
  2. METFORMIN HCL [Concomitant]
     Indication: DIABETES MELLITUS
     Route: 048
  3. GLIMEPIRIDE [Concomitant]
     Indication: DIABETES MELLITUS
     Route: 048
  4. PIOGLITAZONE [Concomitant]
     Indication: DIABETES MELLITUS
     Route: 048
  5. PREDNISONE [Concomitant]
     Indication: RHEUMATOID ARTHRITIS
     Route: 048
  6. TRAMADOL HCL [Concomitant]
     Indication: PAIN
     Route: 048
  7. METHOTREXATE [Concomitant]
     Indication: RHEUMATOID ARTHRITIS
     Route: 048
  8. RAMIPRIL [Concomitant]
     Indication: BLOOD PRESSURE
     Route: 048
  9. HYDROCHLOROTHIAZIDE [Concomitant]
     Indication: BLOOD PRESSURE
     Route: 048
  10. ANASTROZOLE [Concomitant]
     Indication: BREAST CANCER
     Route: 048
  11. RISEDRONATE SODIUM [Concomitant]
     Indication: OSTEOPOROSIS
     Route: 048

REACTIONS (1)
  - INCORRECT DOSE ADMINISTERED [None]
